FAERS Safety Report 10215718 (Version 2)
Quarter: 2014Q3

REPORT INFORMATION
  Report Type: Spontaneous
  Country: CH (occurrence: None)
  Receive Date: 20140527
  Receipt Date: 20140707
  Transmission Date: 20150326
  Serious: Yes (Other)
  Sender: FDA-Public Use
  Company Number: GAM-161-14-CH

PATIENT
  Age: 04 Year
  Sex: Male

DRUGS (1)
  1. OCTAGAM IMMUNE GLOBULIN (HUMAN) [Suspect]
     Active Substance: HUMAN IMMUNOGLOBULIN G
     Indication: BRUTON^S AGAMMAGLOBULINAEMIA
     Dosage: 12 G (1X5 /WEEKS)  INTRAVENOUS (NOT OTHERWISE SPECIFIED)
     Route: 042
     Dates: start: 20130317

REACTIONS (6)
  - Confusional state [None]
  - Urinary retention [None]
  - Abdominal pain [None]
  - Pallor [None]
  - Productive cough [None]
  - Diarrhoea [None]

NARRATIVE: CASE EVENT DATE: 2013
